FAERS Safety Report 6667301-8 (Version None)
Quarter: 2010Q2

REPORT INFORMATION
  Report Type: 
  Country: None (occurrence: None)
  Receive Date: 20100401
  Receipt Date: 20100323
  Transmission Date: 20101027
  Serious: Yes (Hospitalization, Other)
  Sender: FDA-Public Use
  Company Number: 1000012657

PATIENT
  Age: 66 Year
  Sex: Male

DRUGS (24)
  1. NAMENDA [Suspect]
     Indication: DEMENTIA
     Dosage: 5 MG (5 MG, 1 IN 1 D), ORAL, ORAL, 20 MG (10 MG, 2 IN 1 D), ORAL)
     Route: 048
     Dates: end: 20091201
  2. NAMENDA [Suspect]
     Indication: DEMENTIA
     Dosage: 5 MG (5 MG, 1 IN 1 D), ORAL, ORAL, 20 MG (10 MG, 2 IN 1 D), ORAL)
     Route: 048
     Dates: start: 20070101
  3. NAMENDA [Suspect]
     Indication: DEMENTIA
     Dosage: 5 MG (5 MG, 1 IN 1 D), ORAL, ORAL, 20 MG (10 MG, 2 IN 1 D), ORAL)
     Route: 048
     Dates: start: 20091201
  4. DEPAKOTE [Concomitant]
  5. RYTHMOL SR [Concomitant]
  6. TYLENOL-500 [Concomitant]
  7. LORTAB [Concomitant]
  8. NICOTROL [Concomitant]
  9. ABILIFY [Concomitant]
  10. ALLOPURINOL [Concomitant]
  11. BENZTROPINE MESYLATE [Concomitant]
  12. DIGOXIN [Concomitant]
  13. CARDIZEM [Concomitant]
  14. HALDOL [Concomitant]
  15. LIPITOR [Concomitant]
  16. SYNTHROID [Concomitant]
  17. MAGNESIUM OXIDE [Concomitant]
  18. ZOLOFT [Concomitant]
  19. THIAMINE [Concomitant]
  20. VITAMIN D [Concomitant]
  21. FISH OIL [Concomitant]
  22. SYMBYAX [Concomitant]
  23. MULTAQ [Concomitant]
  24. NEPHROVITE [Concomitant]

REACTIONS (6)
  - AGGRESSION [None]
  - ANXIETY [None]
  - ARRHYTHMIA [None]
  - INSOMNIA [None]
  - MOOD ALTERED [None]
  - PARANOIA [None]
